FAERS Safety Report 5560442-8 (Version None)
Quarter: 2007Q4

REPORT INFORMATION
  Report Type: 
  Country: None (occurrence: None)
  Receive Date: 20071215
  Receipt Date: 20071106
  Transmission Date: 20080405
  Serious: No
  Sender: FDA-Public Use
  Company Number: US-ABBOTT-07P-163-0424081-00

PATIENT
  Sex: Male
  Weight: 90.8 kg

DRUGS (3)
  1. HUMIRA [Suspect]
     Indication: SARCOIDOSIS
     Route: 058
     Dates: start: 20071026
  2. TRAZODONE HCL [Concomitant]
     Indication: INSOMNIA
     Route: 048
     Dates: start: 20010101
  3. ESCITALOPRAM OXALATE [Concomitant]
     Indication: ANXIETY
     Route: 048
     Dates: start: 20060101

REACTIONS (1)
  - FATIGUE [None]
